FAERS Safety Report 5105721-3 (Version None)
Quarter: 2006Q3

REPORT INFORMATION
  Report Type: 
  Country: None (occurrence: None)
  Receive Date: 20060915
  Receipt Date: 20060911
  Transmission Date: 20061208
  Serious: Yes (Other)
  Sender: FDA-Public Use
  Company Number: US-SANOFI-SYNTHELABO-A03200605651

PATIENT
  Sex: Male

DRUGS (1)
  1. ELOXATIN [Suspect]
     Indication: DRUG USE FOR UNKNOWN INDICATION
     Route: 042

REACTIONS (2)
  - HYPOTENSION [None]
  - LOSS OF CONSCIOUSNESS [None]
